FAERS Safety Report 4855021-1 (Version None)
Quarter: 2005Q4

REPORT INFORMATION
  Report Type: 
  Country: None (occurrence: None)
  Receive Date: 20051214
  Receipt Date: 20051205
  Transmission Date: 20060501
  Serious: Yes (Death)
  Sender: FDA-Public Use
  Company Number: 2005EU002710

PATIENT
  Age: 42 Year
  Sex: Male

DRUGS (3)
  1. PROGRAF [Suspect]
     Indication: RENAL TRANSPLANT
     Dosage: 24 MG, /D
     Dates: start: 20020101, end: 20020101
  2. PREDNISONE [Concomitant]
  3. MYCOPHENOLATE MOFETIL (MYCOPHENOLATE MOFETIL) [Concomitant]

REACTIONS (15)
  - ABDOMINAL PAIN [None]
  - ANAEMIA [None]
  - BLOOD CREATININE INCREASED [None]
  - CONDITION AGGRAVATED [None]
  - DUODENITIS [None]
  - GASTRITIS [None]
  - GASTROINTESTINAL HAEMORRHAGE [None]
  - HAEMODIALYSIS [None]
  - HAEMODYNAMIC INSTABILITY [None]
  - KAPOSI'S SARCOMA [None]
  - LYMPHADENOPATHY [None]
  - NAUSEA [None]
  - PITTING OEDEMA [None]
  - RENAL IMPAIRMENT [None]
  - WEIGHT DECREASED [None]
